FAERS Safety Report 18105961 (Version 1)
Quarter: 2020Q3

REPORT INFORMATION
  Report Type: Spontaneous
  Country: US (occurrence: US)
  Receive Date: 20200803
  Receipt Date: 20200803
  Transmission Date: 20201103
  Serious: Yes (Death)
  Sender: FDA-Public Use
  Company Number: US-SYNEX-T202003815

PATIENT

DRUGS (1)
  1. INOMAX [Suspect]
     Active Substance: NITRIC OXIDE
     Indication: COVID-19
     Dosage: 30 PPM (INHALATION)
     Route: 055

REACTIONS (3)
  - Product use in unapproved indication [Unknown]
  - Death [Fatal]
  - Product use issue [Unknown]
